FAERS Safety Report 11917553 (Version 1)
Quarter: 2016Q1

REPORT INFORMATION
  Report Type: Report from Study
  Country: CN (occurrence: CN)
  Receive Date: 20160114
  Receipt Date: 20160114
  Transmission Date: 20160526
  Serious: Yes (Death)
  Sender: FDA-Public Use
  Company Number: CN-ASTELLAS-2015US031147

PATIENT
  Age: 24 Year
  Sex: Male

DRUGS (8)
  1. IFOSFAMIDE. [Concomitant]
     Active Substance: IFOSFAMIDE
     Indication: NON-HODGKIN^S LYMPHOMA
     Dosage: UNK UNK, UNKNOWN FREQ.
     Route: 065
  2. CYCLOPHOSPHAMIDE. [Concomitant]
     Active Substance: CYCLOPHOSPHAMIDE
     Indication: NON-HODGKIN^S LYMPHOMA
     Dosage: UNK UNK, UNKNOWN FREQ.
     Route: 065
  3. MICAFUNGIN [Suspect]
     Active Substance: MICAFUNGIN
     Indication: FUNGAL INFECTION
     Route: 042
     Dates: start: 20140523, end: 20140527
  4. CARBOPLATIN. [Concomitant]
     Active Substance: CARBOPLATIN
     Indication: NON-HODGKIN^S LYMPHOMA
     Dosage: UNK UNK, UNKNOWN FREQ.
     Route: 065
  5. PREDNISONE. [Concomitant]
     Active Substance: PREDNISONE
     Indication: NON-HODGKIN^S LYMPHOMA
     Dosage: UNK UNK, UNKNOWN FREQ.
     Route: 065
  6. LEUROCRISTINE [Concomitant]
     Indication: NON-HODGKIN^S LYMPHOMA
     Dosage: UNK, UNKNOWN FREQ.
     Route: 065
  7. DOXORUBICIN [Concomitant]
     Active Substance: DOXORUBICIN
     Indication: NON-HODGKIN^S LYMPHOMA
     Dosage: UNK UNK, UNKNOWN FREQ.
     Route: 065
  8. ETOPOSIDE. [Concomitant]
     Active Substance: ETOPOSIDE
     Indication: NON-HODGKIN^S LYMPHOMA
     Dosage: UNK UNK, UNKNOWN FREQ.
     Route: 065

REACTIONS (3)
  - Disseminated intravascular coagulation [Fatal]
  - Multiple organ dysfunction syndrome [Fatal]
  - Lung infection [Fatal]

NARRATIVE: CASE EVENT DATE: 20140527
